FAERS Safety Report 9302996 (Version 1)
Quarter: 2013Q2

REPORT INFORMATION
  Report Type: Spontaneous
  Country: FI (occurrence: FI)
  Receive Date: 20130522
  Receipt Date: 20130522
  Transmission Date: 20140414
  Serious: Yes (Hospitalization)
  Sender: FDA-Public Use
  Company Number: FI-PFIZER INC-2013153744

PATIENT
  Age: 67 Year
  Sex: Female

DRUGS (12)
  1. ADRIAMYCIN [Suspect]
     Indication: HODGKIN^S DISEASE
     Dosage: 45-90 MG
     Route: 042
     Dates: start: 20121018, end: 20130308
  2. SENDOXAN [Suspect]
     Indication: HODGKIN^S DISEASE
     Dosage: 1360 MG, UNK
     Route: 042
     Dates: start: 20121214, end: 20130308
  3. BLEOMYCIN BAXTER [Suspect]
     Indication: HODGKIN^S DISEASE
     Dosage: 18 MG, UNK
     Route: 042
     Dates: start: 20121018, end: 20121126
  4. VELBE [Suspect]
     Indication: HODGKIN^S DISEASE
     Dosage: 11 MG, UNK
     Route: 042
     Dates: start: 20121018, end: 20121126
  5. DACATIC [Suspect]
     Indication: HODGKIN^S DISEASE
     Dosage: 680 MG, UNK
     Route: 042
     Dates: start: 20121018, end: 20121126
  6. ONCOVIN [Suspect]
     Indication: HODGKIN^S DISEASE
     Dosage: 2 MG, UNK
     Route: 042
     Dates: start: 20121214, end: 20130308
  7. PREDNISON [Suspect]
     Indication: HODGKIN^S DISEASE
     Dosage: 100 MG, UNK
     Route: 048
     Dates: start: 20121214
  8. SOMAC [Concomitant]
     Indication: PROPHYLAXIS
     Dosage: 20 MG, UNK
     Route: 048
     Dates: start: 20121018
  9. BISOPROLOL ACTAVIS [Concomitant]
     Indication: BLOOD PRESSURE
     Dosage: 5 MG, UNK
     Route: 048
  10. THYROXIN [Concomitant]
     Indication: THYROID HORMONE REPLACEMENT THERAPY
     Dosage: ACCORDING TO SEPARATE INTRUCTIONS
     Route: 048
  11. ZARZIO [Concomitant]
     Indication: WHITE BLOOD CELL DISORDER
     Dosage: UNK
     Route: 058
     Dates: start: 20121214, end: 20130315
  12. KLEXANE [Concomitant]
     Indication: ANTICOAGULANT THERAPY
     Dosage: 40 MG, UNK
     Route: 058

REACTIONS (7)
  - Guillain-Barre syndrome [Not Recovered/Not Resolved]
  - Acute polyneuropathy [Not Recovered/Not Resolved]
  - Radiculopathy [Not Recovered/Not Resolved]
  - Gait disturbance [Not Recovered/Not Resolved]
  - Asthenia [Not Recovered/Not Resolved]
  - Epstein-Barr viraemia [Recovered/Resolved]
  - Neutropenia [Unknown]
